FAERS Safety Report 5993325-X (Version None)
Quarter: 2008Q4

REPORT INFORMATION
  Report Type: 
  Country: None (occurrence: None)
  Receive Date: 20081212
  Receipt Date: 20081208
  Transmission Date: 20090506
  Serious: Yes (Other)
  Sender: FDA-Public Use
  Company Number: US-ASTRAZENECA-2008UW27273

PATIENT

DRUGS (1)
  1. PULMICORT FLEXHALER [Suspect]
     Indication: ASTHMA
     Dosage: 90 UG TWO PUFFS TWICE A DAY
     Route: 055

REACTIONS (3)
  - NASAL CONGESTION [None]
  - NEOPLASM [None]
  - PREMATURE BABY [None]
